FAERS Safety Report 10176758 (Version 1)
Quarter: 2014Q2

REPORT INFORMATION
  Report Type: Spontaneous
  Country: US (occurrence: US)
  Receive Date: 20140516
  Receipt Date: 20140516
  Transmission Date: 20141212
  Serious: Yes (Hospitalization)
  Sender: FDA-Public Use
  Company Number: US-BRISTOL-MYERS SQUIBB COMPANY-20719639

PATIENT
  Age: 66 Year
  Sex: Male

DRUGS (2)
  1. ONGLYZA TABS [Suspect]
     Indication: GLYCOSYLATED HAEMOGLOBIN INCREASED
     Dosage: 1DF:2.5
  2. ONGLYZA TABS [Suspect]
     Indication: TYPE 2 DIABETES MELLITUS
     Dosage: 1DF:2.5

REACTIONS (1)
  - Oropharyngeal pain [Not Recovered/Not Resolved]
